FAERS Safety Report 11765974 (Version 4)
Quarter: 2015Q4

REPORT INFORMATION
  Report Type: Spontaneous
  Country: IT (occurrence: IT)
  Receive Date: 20151122
  Receipt Date: 20151203
  Transmission Date: 20160304
  Serious: Yes (Other)
  Sender: FDA-Public Use
  Company Number: PHHY2015IT151868

PATIENT
  Age: 63 Year
  Sex: Female

DRUGS (5)
  1. ESOMEPRAZOLE [Concomitant]
     Active Substance: ESOMEPRAZOLE
     Indication: PRODUCT USED FOR UNKNOWN INDICATION
     Dosage: 20 MG
     Route: 048
  2. CICLOSPORIN [Suspect]
     Active Substance: CYCLOSPORINE
     Indication: PSORIATIC ARTHROPATHY
     Dosage: 50 MG, QD
     Route: 048
  3. HUMIRA [Concomitant]
     Active Substance: ADALIMUMAB
     Indication: PSORIATIC ARTHROPATHY
     Dosage: 40 MG
     Route: 058
  4. VANTAVO [Concomitant]
     Active Substance: ALENDRONATE SODIUM\CHOLECALCIFEROL
     Indication: PRODUCT USED FOR UNKNOWN INDICATION
     Dosage: 1 DF
     Route: 048
  5. IDEOS [Concomitant]
     Active Substance: CALCIUM CARBONATE\CHOLECALCIFEROL
     Indication: PRODUCT USED FOR UNKNOWN INDICATION
     Dosage: 1 DF
     Route: 048

REACTIONS (2)
  - Hypertensive crisis [Unknown]
  - Erysipelas [Unknown]

NARRATIVE: CASE EVENT DATE: 20151103
